FAERS Safety Report 9100564 (Version 1)
Quarter: 2013Q1

REPORT INFORMATION
  Report Type: Spontaneous
  Country: US (occurrence: US)
  Receive Date: 20130215
  Receipt Date: 20130215
  Transmission Date: 20140127
  Serious: Yes (Other)
  Sender: FDA-Public Use
  Company Number: US-JNJFOC-20130206639

PATIENT
  Age: 39 None
  Sex: Female

DRUGS (1)
  1. TOPAMAX [Suspect]
     Indication: MIGRAINE
     Route: 065

REACTIONS (3)
  - Premature labour [Recovered/Resolved]
  - Placenta accreta [Recovered/Resolved]
  - Exposure during pregnancy [Recovered/Resolved]
